FAERS Safety Report 24845428 (Version 1)
Quarter: 2025Q1

REPORT INFORMATION
  Report Type: Spontaneous
  Country: US (occurrence: None)
  Receive Date: 20250114
  Receipt Date: 20250114
  Transmission Date: 20250409
  Serious: Yes (Other)
  Sender: FDA-CTU
  Company Number: None

PATIENT
  Age: 38 Year
  Sex: Female
  Weight: 66.9 kg

DRUGS (1)
  1. KEYTRUDA [Suspect]
     Active Substance: PEMBROLIZUMAB
     Indication: Triple negative breast cancer
     Route: 041
     Dates: start: 20240402, end: 20241218

REACTIONS (5)
  - Unresponsive to stimuli [None]
  - Ventricular fibrillation [None]
  - Ventricular tachycardia [None]
  - Torsade de pointes [None]
  - Cardiac arrest [None]

NARRATIVE: CASE EVENT DATE: 20241221
